FAERS Safety Report 9832811 (Version 2)
Quarter: 2014Q1

REPORT INFORMATION
  Report Type: Report from Study
  Country: GB (occurrence: GB)
  Receive Date: 20140121
  Receipt Date: 20140131
  Transmission Date: 20141002
  Serious: Yes (Hospitalization)
  Sender: FDA-Public Use
  Company Number: GB-GLAXOSMITHKLINE-B0961395A

PATIENT
  Age: 73 Year
  Sex: Male
  Weight: 96.8 kg

DRUGS (5)
  1. PAZOPANIB [Suspect]
     Indication: RENAL CELL CARCINOMA
     Dosage: 800MG PER DAY
     Route: 048
     Dates: start: 20130123
  2. AMLODIPINE [Concomitant]
     Indication: HYPERTENSION
     Dosage: 10MG PER DAY
     Route: 048
     Dates: start: 20080528
  3. OMEPRAZOLE [Concomitant]
     Indication: PRODUCT USED FOR UNKNOWN INDICATION
     Dosage: 40MG PER DAY
     Route: 048
     Dates: start: 20000121
  4. FLUTICASONE [Concomitant]
     Indication: ASTHMA
     Dosage: 100MCG TWICE PER DAY
     Route: 055
     Dates: start: 20111204
  5. VENTOLIN [Concomitant]
     Indication: ASTHMA
     Dosage: 200MCG AS REQUIRED
     Route: 055
     Dates: start: 20100104

REACTIONS (1)
  - Syncope [Recovered/Resolved]
